FAERS Safety Report 26196296 (Version 1)
Quarter: 2025Q4

REPORT INFORMATION
  Report Type: Spontaneous
  Country: AR (occurrence: AR)
  Receive Date: 20251224
  Receipt Date: 20251224
  Transmission Date: 20260118
  Serious: Yes (Other)
  Sender: SANDOZ
  Company Number: AR-SANDOZ-SDZ2025AR096921

PATIENT
  Age: 82 Year
  Sex: Female

DRUGS (8)
  1. FEMARA [Suspect]
     Active Substance: LETROZOLE
     Indication: Breast cancer metastatic
     Dosage: 2.5 MG
  2. FEMARA [Suspect]
     Active Substance: LETROZOLE
     Dosage: 2.5 MG, QD
     Dates: start: 20230806
  3. FEMARA [Suspect]
     Active Substance: LETROZOLE
     Dosage: 2.5 MG, EVERY OTHER DAY
  4. FEMARA [Suspect]
     Active Substance: LETROZOLE
     Dosage: 2.5 MG
  5. FULVESTRANT [Suspect]
     Active Substance: FULVESTRANT
     Indication: Product used for unknown indication
     Dosage: UNK
  6. DENOSUMAB [Concomitant]
     Active Substance: DENOSUMAB
     Indication: Breast cancer metastatic
     Dosage: UNK
  7. DENOSUMAB [Concomitant]
     Active Substance: DENOSUMAB
     Dosage: UNK, QMO (AMPOULE / INJECTION) (IN THE  ARM)
     Dates: start: 20230806
  8. DENOSUMAB [Concomitant]
     Active Substance: DENOSUMAB
     Dosage: 120 MG, QMO

REACTIONS (34)
  - Breast cancer metastatic [Unknown]
  - Malignant neoplasm progression [Unknown]
  - Metastases to lung [Unknown]
  - Nasopharyngitis [Unknown]
  - Cough [Unknown]
  - Catarrh [Recovering/Resolving]
  - Pulmonary oedema [Unknown]
  - Eye disorder [Unknown]
  - Lung disorder [Unknown]
  - Metastases to bone [Unknown]
  - Rhinitis [Unknown]
  - Nasal septum deviation [Unknown]
  - Rhinalgia [Unknown]
  - Facial pain [Unknown]
  - Malaise [Recovering/Resolving]
  - Visual impairment [Unknown]
  - Memory impairment [Unknown]
  - Hypoacusis [Unknown]
  - Agitation [Recovering/Resolving]
  - Sensory disturbance [Recovering/Resolving]
  - Gait disturbance [Recovering/Resolving]
  - Influenza [Unknown]
  - Dyspnoea [Unknown]
  - Dyspepsia [Unknown]
  - Abdominal pain upper [Recovering/Resolving]
  - Distractibility [Recovering/Resolving]
  - Abdominal discomfort [Recovering/Resolving]
  - Ill-defined disorder [Recovering/Resolving]
  - Gastrointestinal pain [Recovering/Resolving]
  - Constipation [Recovering/Resolving]
  - Pleural effusion [Unknown]
  - Optical coherence tomography abnormal [Unknown]
  - Product use issue [Recovered/Resolved]
  - Incorrect dose administered [Recovered/Resolved]

NARRATIVE: CASE EVENT DATE: 20230901
